FAERS Safety Report 17618110 (Version 1)
Quarter: 2020Q2

REPORT INFORMATION
  Report Type: Spontaneous
  Country: US (occurrence: US)
  Receive Date: 20200402
  Receipt Date: 20200402
  Transmission Date: 20200713
  Serious: No
  Sender: FDA-Public Use
  Company Number: US-ROCHE-2401617

PATIENT
  Sex: Female

DRUGS (7)
  1. IRON [Concomitant]
     Active Substance: IRON
  2. ERIVEDGE [Suspect]
     Active Substance: VISMODEGIB
     Indication: CONGENITAL ANOMALY
     Dosage: TAKE ONE CAPSULE BY MOUTH EVERY DAY.
     Route: 048
  3. SINGULAIR [Concomitant]
     Active Substance: MONTELUKAST SODIUM
  4. VITAMIN C [Concomitant]
     Active Substance: ASCORBIC ACID
  5. ASPIRIN 81 [Concomitant]
     Active Substance: ASPIRIN
  6. FUROSEMIDE. [Concomitant]
     Active Substance: FUROSEMIDE
     Route: 065
  7. METOPROLOL TARTRATE. [Concomitant]
     Active Substance: METOPROLOL TARTRATE
     Route: 065

REACTIONS (1)
  - Muscle spasms [Recovered/Resolved]
